FAERS Safety Report 5875068-6 (Version None)
Quarter: 2008Q3

REPORT INFORMATION
  Report Type: 
  Country: None (occurrence: None)
  Receive Date: 20080904
  Receipt Date: 20080821
  Transmission Date: 20090109
  Serious: Yes (Death, Hospitalization)
  Sender: FDA-Public Use
  Company Number: 2008AL009833

PATIENT
  Age: 67 Year
  Sex: Female

DRUGS (1)
  1. DIGOXIN TABLETS, USP (AMIDE) [Suspect]
     Indication: ATRIAL FIBRILLATION
     Dosage: DAILY, PO
     Route: 048

REACTIONS (6)
  - ATRIAL FIBRILLATION [None]
  - BLOOD PRESSURE DECREASED [None]
  - CARDIAC ARREST [None]
  - CARDIAC FAILURE CONGESTIVE [None]
  - DIZZINESS [None]
  - SYNCOPE [None]
